FAERS Safety Report 10233918 (Version 1)
Quarter: 2014Q1

REPORT INFORMATION
  Report Type: Spontaneous
  Country: US (occurrence: None)
  Receive Date: 20140306
  Receipt Date: 20140306
  Transmission Date: 20141002
  Serious: Yes (Other)
  Sender: FDA-Public Use
  Company Number: 163-21880-13113407

PATIENT
  Age: 77 Year
  Sex: Female
  Weight: 69.85 kg

DRUGS (22)
  1. REVLIMID [Suspect]
     Indication: MYELODYSPLASTIC SYNDROME
     Route: 048
     Dates: start: 201102
  2. PROCRIT (ERYTHROPOIETIN) (UNKNOWN) [Concomitant]
  3. ADVAIR (SERETIDE MITE) (INHALANT) [Concomitant]
  4. ALBUTEROL SULFATE (SALBUTAMOL SULFATE) (0.083 PERCENT, INHALANT) [Concomitant]
  5. ALPRAZOLAM (ALPRAZOLAM) (TABLETS) [Concomitant]
  6. CIPROFLOXACIN (CIPROFLOXACIN) (TABLETS) [Concomitant]
  7. HYDROCODONE IBUPROFEN (VICOPROFEN) (TABLETS) [Concomitant]
  8. LORAZEPAM (LORAZEPAM) (TABLETS) [Concomitant]
  9. LUNESTA [Concomitant]
  10. LYRICA (PREGABALIN) (CAPSULES) [Concomitant]
  11. METFORMIN (METFORMIN) (TABLETS) [Concomitant]
  12. NEUPRO (ROTIGOTINE) (POULTICE OR PATCH) [Concomitant]
  13. PERCOCET (OXYCOCET) (TABLETS) [Concomitant]
  14. PREDNISONE (PREDNISONE) (CAPSULES) [Concomitant]
  15. PROAIR HFA (SALBUTAMOL SULFATE) (INHALANT) [Concomitant]
  16. ROPINIROLE (ROPINIROLE) (TABLETS) [Concomitant]
  17. SERTRALINE (SERTRALINE) (TABLETS) [Concomitant]
  18. SIMVASTATIN (SIMVASTATIN) (TABLETS) [Concomitant]
  19. TEMAZEPAM (TEMAZEPAM) (CAPSULES) [Concomitant]
  20. WARFARIN (WARFARIN) (TABLETS) [Concomitant]
  21. ZITHROMAX Z-PAK (AZITHROMYCIN) (TABLETS) [Concomitant]
  22. NEUPOGEN (FILGRASTIM) (UNKNOWN) [Concomitant]

REACTIONS (2)
  - Neutropenia [None]
  - Localised infection [None]
